FAERS Safety Report 17467567 (Version 9)
Quarter: 2021Q1

REPORT INFORMATION
  Report Type: Report from Study
  Country: CL (occurrence: CL)
  Receive Date: 20200227
  Receipt Date: 20210122
  Transmission Date: 20210419
  Serious: Yes (Other)
  Sender: FDA-Public Use
  Company Number: CL-BRISTOL-MYERS SQUIBB COMPANY-BMS-2019-086490

PATIENT
  Age: 49 Year
  Sex: Female

DRUGS (5)
  1. CALCIUM [Concomitant]
     Active Substance: CALCIUM
     Indication: PRODUCT USED FOR UNKNOWN INDICATION
     Dosage: UNK
     Route: 065
  2. ABATACEPT [Suspect]
     Active Substance: ABATACEPT
     Indication: RHEUMATOID ARTHRITIS
     Dosage: 125 MILLIGRAM, QWK
     Route: 058
     Dates: start: 20190507, end: 20200706
  3. PREDNISONE. [Suspect]
     Active Substance: PREDNISONE
     Indication: PRODUCT USED FOR UNKNOWN INDICATION
     Dosage: UNK
     Route: 065
  4. CELEBREX [Concomitant]
     Active Substance: CELECOXIB
     Indication: PRODUCT USED FOR UNKNOWN INDICATION
     Dosage: UNK
     Route: 065
  5. LEFLUNOMIDE. [Concomitant]
     Active Substance: LEFLUNOMIDE
     Indication: PRODUCT USED FOR UNKNOWN INDICATION
     Dosage: UNK
     Route: 065

REACTIONS (24)
  - Vaginal haemorrhage [Unknown]
  - Immune system disorder [Unknown]
  - Throat irritation [Recovering/Resolving]
  - Headache [Not Recovered/Not Resolved]
  - Back pain [Not Recovered/Not Resolved]
  - Chest pain [Unknown]
  - Sjogren^s syndrome [Recovering/Resolving]
  - Nausea [Not Recovered/Not Resolved]
  - Cushing^s syndrome [Recovered/Resolved]
  - Rheumatoid arthritis [Unknown]
  - Speech disorder [Recovered/Resolved]
  - Dry throat [Recovering/Resolving]
  - Asthenia [Unknown]
  - Pharyngitis [Recovered/Resolved]
  - Arrhythmia [Recovering/Resolving]
  - Eye inflammation [Unknown]
  - Oropharyngeal pain [Recovered/Resolved]
  - Pain in jaw [Unknown]
  - Nasopharyngitis [Recovered/Resolved]
  - Cough [Recovering/Resolving]
  - Neck pain [Unknown]
  - Eye infection [Recovering/Resolving]
  - Eye pain [Unknown]
  - Haemoptysis [Recovering/Resolving]

NARRATIVE: CASE EVENT DATE: 20190521
